FAERS Safety Report 7757807-2 (Version None)
Quarter: 2011Q3

REPORT INFORMATION
  Report Type: 
  Country: None (occurrence: None)
  Receive Date: 20110918
  Receipt Date: 20110912
  Transmission Date: 20111222
  Serious: Yes (Life-Threatening, Hospitalization, Other)
  Sender: FDA-Public Use
  Company Number: US-ASTRAZENECA-2011SE54468

PATIENT
  Age: 80 Year
  Sex: Male

DRUGS (11)
  1. EZETIMIBE [Concomitant]
     Dates: start: 20110512
  2. DIURETICS [Concomitant]
  3. ROPIVACAINE HYDROCHLORIDE [Suspect]
     Indication: ANALGESIC THERAPY
     Route: 008
  4. ADRENALIN IN OIL INJ [Suspect]
     Indication: ANALGESIC THERAPY
     Route: 008
  5. PLACEBO [Suspect]
     Route: 065
     Dates: start: 20110711
  6. ASPIRIN [Concomitant]
  7. FENTANYL [Suspect]
     Indication: ANALGESIC THERAPY
     Route: 008
  8. SAXAGLIPTIN [Suspect]
     Indication: TYPE 2 DIABETES MELLITUS
     Route: 048
     Dates: start: 20110217, end: 20110629
  9. PLACEBO [Suspect]
     Indication: TYPE 2 DIABETES MELLITUS
     Route: 065
     Dates: start: 20110217, end: 20110629
  10. ANGIOTENSIN CONVERTING ENZYME INHIBITOR [Concomitant]
  11. SAXAGLIPTIN [Suspect]
     Route: 048
     Dates: start: 20110711

REACTIONS (4)
  - ANAEMIA [None]
  - THROMBOCYTOPENIA [None]
  - SICK SINUS SYNDROME [None]
  - HYPOTENSION [None]
